FAERS Safety Report 13080828 (Version 3)
Quarter: 2017Q1

REPORT INFORMATION
  Report Type: Spontaneous
  Country: ES (occurrence: ES)
  Receive Date: 20170103
  Receipt Date: 20170227
  Transmission Date: 20170428
  Serious: Yes (Life-Threatening, Other)
  Sender: FDA-Public Use
  Company Number: ES-US WORLDMEDS, LLC-USW201612-000985

PATIENT
  Age: 80 Year
  Sex: Female

DRUGS (5)
  1. SAFINAMIDE [Concomitant]
     Active Substance: SAFINAMIDE
     Indication: PARKINSON^S DISEASE
     Dates: start: 20160629
  2. LEVODOPA/CARBIDOPA S [Concomitant]
     Indication: PARKINSON^S DISEASE
     Dates: start: 2003
  3. APOMORPHINE HYDROCHLORIDE [Suspect]
     Active Substance: APOMORPHINE HYDROCHLORIDE
     Indication: PARKINSON^S DISEASE
     Route: 058
     Dates: start: 20140716, end: 20161214
  4. LEVODOPA RETARD [Concomitant]
     Indication: PARKINSON^S DISEASE
     Dates: start: 2003
  5. PRAMIPEXOLE. [Concomitant]
     Active Substance: PRAMIPEXOLE
     Indication: PARKINSON^S DISEASE
     Dates: start: 20110225

REACTIONS (2)
  - Haemolysis [Recovering/Resolving]
  - Coombs positive haemolytic anaemia [Recovered/Resolved]

NARRATIVE: CASE EVENT DATE: 201609
